FAERS Safety Report 4334714-9 (Version None)
Quarter: 2004Q2

REPORT INFORMATION
  Report Type: 
  Country: None (occurrence: None)
  Receive Date: 20040407
  Receipt Date: 20040407
  Transmission Date: 20050107
  Serious: Yes (Life-Threatening, Hospitalization)
  Sender: FDA-Public Use
  Company Number: None

PATIENT
  Sex: Male

DRUGS (2)
  1. KETOROLAC    60 MG [Suspect]
     Indication: LIMB INJURY
     Dosage: 60 MG ONCE INTRAMENINGINEAL
     Route: 029
     Dates: start: 20040119, end: 20040119
  2. KETOROLAC    60 MG [Suspect]
     Indication: PAIN
     Dosage: 60 MG ONCE INTRAMENINGINEAL
     Route: 029
     Dates: start: 20040119, end: 20040119

REACTIONS (6)
  - ACUTE RESPIRATORY FAILURE [None]
  - ANXIETY [None]
  - DIZZINESS [None]
  - FLUSHING [None]
  - HYPERTENSION [None]
  - TACHYCARDIA [None]
